FAERS Safety Report 13543158 (Version 1)
Quarter: 2017Q2

REPORT INFORMATION
  Report Type: Spontaneous
  Country: US (occurrence: US)
  Receive Date: 20170514
  Receipt Date: 20170514
  Transmission Date: 20170830
  Serious: No
  Sender: FDA-Public Use
  Company Number: US-ALARA PHARMACEUTICAL CORPORATION-2020686

PATIENT
  Age: 78 Year
  Sex: Female
  Weight: 71.82 kg

DRUGS (7)
  1. LEVO-T [Suspect]
     Active Substance: LEVOTHYROXINE SODIUM
     Indication: HYPOTHYROIDISM
     Route: 048
  2. VENTOLIN HFA [Concomitant]
     Active Substance: ALBUTEROL SULFATE
  3. EYE DROPS [Concomitant]
     Active Substance: UNSPECIFIED INGREDIENT
  4. VALIUM [Concomitant]
     Active Substance: DIAZEPAM
  5. ADVAIR HFA [Concomitant]
     Active Substance: FLUTICASONE PROPIONATE\SALMETEROL XINAFOATE
  6. GENERIC NASONEX [Concomitant]
  7. SLEEPING PILL [Concomitant]

REACTIONS (2)
  - Oropharyngeal pain [Not Recovered/Not Resolved]
  - Oropharyngeal pain [Not Recovered/Not Resolved]

NARRATIVE: CASE EVENT DATE: 20160608
